FAERS Safety Report 8798937 (Version 2)
Quarter: 2013Q1

REPORT INFORMATION
  Report Type: Spontaneous
  Country: US (occurrence: None)
  Receive Date: 20120913
  Receipt Date: 20121101
  Transmission Date: 20140127
  Serious: Yes (Other)
  Sender: FDA-Public Use
  Company Number: ACO_31878_2012

PATIENT
  Age: 41 Year
  Sex: Male

DRUGS (8)
  1. FAMPYRA [Suspect]
     Indication: GAIT DISTURBANCE
     Route: 048
     Dates: start: 20120802, end: 20120812
  2. BETAFERON (INTERFERON BETA-1B) [Concomitant]
  3. COUMADIN (WARFARIN SODIUM) [Concomitant]
  4. ASPIRIN (ACETYLSALICYLIC ACID) [Concomitant]
  5. CARDURA (DOXAZOSIN MESILATE) [Concomitant]
  6. CALCIUM (CALCIUM GLUCONATE) [Concomitant]
  7. OMEGA 3 6 9 (OMEGA 9 FATTY ACIDS, OMEGA-3 FATTY ACIDS, OMEGA-6 FATTY ACIDS) [Concomitant]
  8. VITAMIN D (COLECALCIFEROL) [Concomitant]

REACTIONS (2)
  - Epistaxis [None]
  - International normalised ratio increased [None]
